FAERS Safety Report 22321234 (Version 1)
Quarter: 2023Q2

REPORT INFORMATION
  Report Type: Report from Study
  Country: FR (occurrence: None)
  Receive Date: 20230515
  Receipt Date: 20230515
  Transmission Date: 20230721
  Serious: Yes (Hospitalization)
  Sender: FDA-Public Use
  Company Number: FR-CDN-EMD Serono,a division of EMD Inc.-9401707

PATIENT
  Age: 14 Year
  Sex: Female
  Weight: 29 kg

DRUGS (1)
  1. SAIZEN [Suspect]
     Active Substance: SOMATROPIN
     Indication: Product used for unknown indication
     Route: 058
     Dates: start: 20230324

REACTIONS (1)
  - Lung operation [Unknown]
